FAERS Safety Report 21637821 (Version 1)
Quarter: 2022Q4

REPORT INFORMATION
  Report Type: Spontaneous
  Country: US (occurrence: US)
  Receive Date: 20221124
  Receipt Date: 20221124
  Transmission Date: 20230113
  Serious: No
  Sender: FDA-Public Use
  Company Number: US-KERYX BIOPHARMACEUTICALS INC.-2022US009762

PATIENT
  Age: 65 Year
  Sex: Female
  Weight: 49.887 kg

DRUGS (14)
  1. AURYXIA [Suspect]
     Active Substance: TETRAFERRIC TRICITRATE DECAHYDRATE
     Indication: Hyperphosphataemia
     Dosage: 1 GRAM (TABLET), TID WITH MEALS
     Route: 048
  2. AURYXIA [Suspect]
     Active Substance: TETRAFERRIC TRICITRATE DECAHYDRATE
     Indication: Hypokalaemia
  3. LOSARTAN [Concomitant]
     Active Substance: LOSARTAN
  4. MIRTAZAPINE [Concomitant]
     Active Substance: MIRTAZAPINE
  5. PAROXETINE [Concomitant]
     Active Substance: PAROXETINE
  6. ELIQUIS [Concomitant]
     Active Substance: APIXABAN
  7. VITAMIN D                          /00107901/ [Concomitant]
  8. OMEPRAZOLE [Concomitant]
     Active Substance: OMEPRAZOLE
  9. TRAZODONE [Concomitant]
     Active Substance: TRAZODONE HYDROCHLORIDE
  10. LEVOTHYROXINE [Concomitant]
     Active Substance: LEVOTHYROXINE
  11. ROSUVASTATIN [Concomitant]
     Active Substance: ROSUVASTATIN
  12. CLONIDINE [Concomitant]
     Active Substance: CLONIDINE
  13. GLIPIZIDE [Concomitant]
     Active Substance: GLIPIZIDE
  14. INDAPAMIDE [Concomitant]
     Active Substance: INDAPAMIDE

REACTIONS (3)
  - Illness [Unknown]
  - Arthralgia [Unknown]
  - Gait disturbance [Unknown]
